FAERS Safety Report 9366261 (Version 1)
Quarter: 2013Q2

REPORT INFORMATION
  Report Type: Spontaneous
  Country: US (occurrence: US)
  Receive Date: 20130625
  Receipt Date: 20130625
  Transmission Date: 20140414
  Serious: No
  Sender: FDA-Public Use
  Company Number: US-GLAXOSMITHKLINE-A0976416A

PATIENT
  Age: 55 Year
  Sex: Female

DRUGS (9)
  1. VERAMYST [Suspect]
     Indication: ILL-DEFINED DISORDER
     Route: 045
     Dates: start: 201203, end: 201204
  2. TREXIMET [Concomitant]
  3. UNKNOWN MEDICATION [Concomitant]
  4. LUMIGAN [Concomitant]
  5. LOVASTATIN [Concomitant]
  6. MECLIZINE [Concomitant]
  7. KLONOPIN [Concomitant]
  8. HEADACHE MEDICATION [Concomitant]
  9. EXCEDRIN [Concomitant]

REACTIONS (1)
  - Headache [Recovering/Resolving]
